FAERS Safety Report 9267608 (Version 1)
Quarter: 2013Q2

REPORT INFORMATION
  Report Type: Report from Study
  Country: US (occurrence: US)
  Receive Date: 20130502
  Receipt Date: 20130502
  Transmission Date: 20140414
  Serious: Yes (Hospitalization)
  Sender: FDA-Public Use
  Company Number: US-ALEXION-A201200714

PATIENT
  Age: 66 Year
  Sex: Female
  Weight: 67.6 kg

DRUGS (12)
  1. SOLIRIS [Suspect]
     Indication: HAEMOLYTIC URAEMIC SYNDROME
     Dosage: 900 MG, QW
     Route: 042
     Dates: start: 20120131, end: 20120209
  2. CALCIUM CARBONATE [Concomitant]
     Dosage: 500, 1 TID WITH MEALS
     Route: 048
  3. COREG [Concomitant]
     Dosage: 6.25 MG, BID (DO NOT TAKE MORNING OF DIALYSIS)
     Route: 048
  4. CYMBALTA [Concomitant]
     Dosage: 60 MG, QD
     Route: 048
  5. DIVALPROEX SODIUM [Concomitant]
     Dosage: 750 MG, BID
     Route: 048
  6. FOLIC ACID [Concomitant]
     Dosage: 1 MG, QD
     Route: 048
  7. METOCLOPRAMIDE HYDROCHLORIDE [Concomitant]
     Dosage: 5 MG, QD
     Route: 048
  8. MIRALAX [Concomitant]
  9. NEURONTIN [Concomitant]
     Dosage: 300 MG, QHS
     Route: 048
  10. OMEPRAZOLE [Concomitant]
     Dosage: 20 MG, QD
     Route: 048
  11. PREDNISONE [Concomitant]
     Dosage: 20 MG, QD
     Route: 048
  12. PREMARIN [Concomitant]
     Dosage: 0.625 MG, QHS
     Route: 048

REACTIONS (3)
  - Haemolytic uraemic syndrome [None]
  - Condition aggravated [None]
  - Pyrexia [Unknown]
